FAERS Safety Report 11286765 (Version 1)
Quarter: 2015Q3

REPORT INFORMATION
  Report Type: Spontaneous
  Country: US (occurrence: None)
  Receive Date: 20150720
  Receipt Date: 20150720
  Transmission Date: 20151125
  Serious: Yes (Other)
  Sender: FDA-Public Use
  Company Number: None

PATIENT
  Age: 16 Year
  Sex: Female
  Weight: 47.63 kg

DRUGS (2)
  1. DEPO-PROVERA [Suspect]
     Active Substance: MEDROXYPROGESTERONE ACETATE
     Indication: CONTRACEPTION
     Dosage: INTO A VEIN
     Dates: start: 20141009, end: 20150719
  2. NINJA TURTLE VITAMINS [Concomitant]

REACTIONS (8)
  - Feeling abnormal [None]
  - Vaginal haemorrhage [None]
  - Libido decreased [None]
  - Pain [None]
  - Dyspareunia [None]
  - Skin odour abnormal [None]
  - Haemorrhage [None]
  - Mood swings [None]
